FAERS Safety Report 6982515-5 (Version None)
Quarter: 2010Q3

REPORT INFORMATION
  Report Type: 
  Country: None (occurrence: None)
  Receive Date: 20100914
  Receipt Date: 20100127
  Transmission Date: 20110219
  Serious: No
  Sender: FDA-Public Use
  Company Number: US-PFIZER INC-2010012313

PATIENT
  Sex: Male
  Weight: 104.32 kg

DRUGS (2)
  1. LYRICA [Suspect]
     Indication: PAIN
     Dosage: 150 MG, 3X/DAY
     Route: 048
     Dates: start: 20090115
  2. NEURONTIN [Suspect]
     Indication: PAIN
     Dosage: UNK
     Dates: start: 20090101, end: 20090101

REACTIONS (2)
  - THYROID FUNCTION TEST ABNORMAL [None]
  - WEIGHT INCREASED [None]
